FAERS Safety Report 13350552 (Version 1)
Quarter: 2017Q1

REPORT INFORMATION
  Report Type: Spontaneous
  Country: GB (occurrence: GB)
  Receive Date: 20170320
  Receipt Date: 20170320
  Transmission Date: 20170429
  Serious: Yes (Other)
  Sender: FDA-Public Use
  Company Number: GB-SHIRE-GB201705282

PATIENT
  Age: 14 Year
  Sex: Male
  Weight: 46 kg

DRUGS (1)
  1. INTUNIV [Suspect]
     Active Substance: GUANFACINE HYDROCHLORIDE
     Indication: ATTENTION DEFICIT/HYPERACTIVITY DISORDER
     Dosage: 3 MG, UNKNOWN
     Route: 048
     Dates: start: 20170215, end: 20170227

REACTIONS (2)
  - Atrioventricular block [Unknown]
  - Bradycardia [Unknown]

NARRATIVE: CASE EVENT DATE: 20170227
